FAERS Safety Report 5876139-0 (Version None)
Quarter: 2008Q3

REPORT INFORMATION
  Report Type: 
  Country: None (occurrence: None)
  Receive Date: 20080910
  Receipt Date: 20080904
  Transmission Date: 20090109
  Serious: Yes (Death, Life-Threatening, Hospitalization, Disabling)
  Sender: FDA-Public Use
  Company Number: JP-AVENTIS-200812101JP

PATIENT
  Age: 76 Year
  Sex: Male
  Weight: 52.9 kg

DRUGS (8)
  1. TAXOTERE [Suspect]
     Indication: LUNG SQUAMOUS CELL CARCINOMA RECURRENT
     Route: 041
     Dates: start: 20080414, end: 20080414
  2. TAXOTERE [Suspect]
     Route: 041
     Dates: start: 20080515, end: 20080515
  3. TAXOTERE [Suspect]
     Route: 041
     Dates: start: 20080613, end: 20080613
  4. MYSLEE [Concomitant]
     Indication: INSOMNIA
     Route: 048
     Dates: start: 20061201
  5. MAGNESIUM OXIDE [Concomitant]
     Indication: CONSTIPATION
     Route: 048
  6. AMARYL [Concomitant]
     Indication: DIABETES MELLITUS
     Route: 048
  7. GASMOTIN [Concomitant]
     Indication: GASTRITIS
     Route: 048
  8. ALTAT [Concomitant]
     Indication: GASTRITIS
     Route: 048

REACTIONS (1)
  - INTERSTITIAL LUNG DISEASE [None]
